FAERS Safety Report 19140920 (Version 5)
Quarter: 2021Q3

REPORT INFORMATION
  Report Type: Report from Study
  Country: BE (occurrence: BE)
  Receive Date: 20210415
  Receipt Date: 20210713
  Transmission Date: 20211014
  Serious: Yes (Hospitalization, Other)
  Sender: FDA-Public Use
  Company Number: BE-BRISTOL-MYERS SQUIBB COMPANY-BMS-2021-013813

PATIENT
  Age: 31 Year
  Sex: Male

DRUGS (9)
  1. NIVOLUMAB [Suspect]
     Active Substance: NIVOLUMAB
     Dosage: 94 MILLIGRAM, Q3WK
     Route: 042
     Dates: start: 20210215
  2. NIVOLUMAB [Suspect]
     Active Substance: NIVOLUMAB
     Indication: MALIGNANT MELANOMA
     Dosage: 94 MILLIGRAM, Q3WK
     Route: 042
     Dates: start: 20210125
  3. TRADONAL ODIS [Concomitant]
     Indication: HEADACHE
     Dosage: 50 MILLIGRAM/AS NEEDED
     Route: 065
  4. IPILIMUMAB [Suspect]
     Active Substance: IPILIMUMAB
     Indication: MALIGNANT MELANOMA
     Dosage: 285 MILLIGRAM, Q3WK
     Route: 042
     Dates: start: 20210125
  5. DAFALGAN [Concomitant]
     Active Substance: ACETAMINOPHEN
     Indication: HEADACHE
     Dosage: 1 GRAM/AS NEEDED
     Route: 065
  6. NIVOLUMAB [Suspect]
     Active Substance: NIVOLUMAB
     Dosage: 90MG (DOSAGE WAS STILL 1.0 MG/KG)
     Route: 042
     Dates: start: 20210308
  7. IPILIMUMAB [Suspect]
     Active Substance: IPILIMUMAB
     Dosage: 275 MILLIGRAM, Q3WK
     Route: 042
     Dates: start: 20210308
  8. IPILIMUMAB [Suspect]
     Active Substance: IPILIMUMAB
     Dosage: 280 MILLIGRAM, Q3WK
     Route: 042
     Dates: start: 20210215
  9. CHARCOAL [Concomitant]
     Active Substance: ACTIVATED CHARCOAL
     Indication: PRODUCT USED FOR UNKNOWN INDICATION

REACTIONS (21)
  - Diarrhoea [Recovered/Resolved]
  - Metastases to meninges [Unknown]
  - Skin lesion [Unknown]
  - Dyspepsia [Unknown]
  - Dehydration [Recovered/Resolved]
  - Insomnia [Not Recovered/Not Resolved]
  - Off label use [Unknown]
  - Dizziness [Unknown]
  - Frequent bowel movements [Unknown]
  - Fatigue [Not Recovered/Not Resolved]
  - Poor quality sleep [Unknown]
  - Eating disorder [Unknown]
  - General physical health deterioration [Unknown]
  - Pruritus [Unknown]
  - Decreased appetite [Unknown]
  - Malignant neoplasm progression [Unknown]
  - Gastrointestinal pain [Unknown]
  - Headache [Not Recovered/Not Resolved]
  - Malaise [Unknown]
  - Ear pain [Unknown]
  - Weight decreased [Unknown]

NARRATIVE: CASE EVENT DATE: 20210125
